FAERS Safety Report 5563661-X (Version None)
Quarter: 2007Q4

REPORT INFORMATION
  Report Type: 
  Country: None (occurrence: None)
  Receive Date: 20071217
  Receipt Date: 20070720
  Transmission Date: 20080405
  Serious: No
  Sender: FDA-Public Use
  Company Number: US-ASTRAZENECA-2007UW17739

PATIENT
  Age: 61 Year
  Sex: Female
  Weight: 56.2 kg

DRUGS (1)
  1. CRESTOR [Suspect]
     Indication: BLOOD CHOLESTEROL INCREASED
     Dosage: 5 OR 10 MG
     Route: 048

REACTIONS (2)
  - DYSGEUSIA [None]
  - REGURGITATION [None]
